FAERS Safety Report 4723413-7 (Version None)
Quarter: 2005Q3

REPORT INFORMATION
  Report Type: 
  Country: None (occurrence: None)
  Receive Date: 20050721
  Receipt Date: 20050721
  Transmission Date: 20060218
  Serious: Yes (Hospitalization)
  Sender: FDA-Public Use
  Company Number: None

PATIENT
  Age: 46 Year
  Sex: Female

DRUGS (1)
  1. TACROLIMUS [Suspect]
     Dosage: TOPICAL
     Route: 061

REACTIONS (3)
  - BURNING SENSATION [None]
  - ECZEMA [None]
  - SKIN IRRITATION [None]
